FAERS Safety Report 7743474-0 (Version None)
Quarter: 2011Q3

REPORT INFORMATION
  Report Type: 
  Country: None (occurrence: None)
  Receive Date: 20110912
  Receipt Date: 20110906
  Transmission Date: 20111222
  Serious: Yes (Hospitalization)
  Sender: FDA-Public Use
  Company Number: DE-ABBOTT-10P-062-0658855-00

PATIENT
  Sex: Female
  Weight: 73.2 kg

DRUGS (7)
  1. HUMIRA [Suspect]
  2. NAPROXEN [Concomitant]
     Indication: ANALGESIC THERAPY
  3. OMEPRAZOLE [Concomitant]
     Indication: GASTRIC DISORDER
  4. SIMVASTATIN [Concomitant]
     Indication: PRODUCT USED FOR UNKNOWN INDICATION
  5. ACTONEL [Concomitant]
     Indication: PRODUCT USED FOR UNKNOWN INDICATION
  6. HUMIRA [Suspect]
     Indication: RHEUMATOID ARTHRITIS
     Route: 058
     Dates: start: 20100212
  7. OMEPRAZOLE [Concomitant]
     Indication: PROPHYLAXIS

REACTIONS (2)
  - BORRELIA INFECTION [None]
  - DEAFNESS [None]
